FAERS Safety Report 5512260-4 (Version None)
Quarter: 2007Q4

REPORT INFORMATION
  Report Type: 
  Country: None (occurrence: None)
  Receive Date: 20071112
  Receipt Date: 20070822
  Transmission Date: 20080405
  Serious: No
  Sender: FDA-Public Use
  Company Number: A0674734A

PATIENT
  Age: 63 Year
  Sex: Male

DRUGS (4)
  1. VERAMYST [Suspect]
     Dosage: 2PUFF PER DAY
     Route: 045
     Dates: start: 20070814
  2. MICARDIS HCT [Concomitant]
  3. ZETIA [Concomitant]
  4. MUCINEX [Concomitant]

REACTIONS (1)
  - NASAL CONGESTION [None]
